FAERS Safety Report 17877748 (Version 2)
Quarter: 2020Q2

REPORT INFORMATION
  Report Type: Report from Study
  Country: None (occurrence: US)
  Receive Date: 20200609
  Receipt Date: 20200622
  Transmission Date: 20200714
  Serious: No
  Sender: FDA-Public Use
  Company Number: US-ABBVIE-20K-163-3435961-00

PATIENT
  Sex: Male

DRUGS (2)
  1. HUMIRA [Suspect]
     Active Substance: ADALIMUMAB
     Indication: RHEUMATOID ARTHRITIS
     Route: 058
     Dates: start: 2017, end: 20200107
  2. RINVOQ [Suspect]
     Active Substance: UPADACITINIB
     Indication: RHEUMATOID ARTHRITIS
     Route: 048
     Dates: start: 20200121

REACTIONS (7)
  - Pain [Unknown]
  - Hypertension [Unknown]
  - Memory impairment [Unknown]
  - Blood cholesterol increased [Unknown]
  - Asthenia [Recovered/Resolved]
  - Loss of personal independence in daily activities [Unknown]
  - Nerve compression [Unknown]

NARRATIVE: CASE EVENT DATE: 2017
